FAERS Safety Report 15269143 (Version 1)
Quarter: 2018Q3

REPORT INFORMATION
  Report Type: Spontaneous
  Country: US (occurrence: US)
  Receive Date: 20180813
  Receipt Date: 20180813
  Transmission Date: 20181010
  Serious: No
  Sender: FDA-Public Use
  Company Number: US-ASTRAZENECA-2018SE93568

PATIENT

DRUGS (1)
  1. BYETTA [Suspect]
     Active Substance: EXENATIDE
     Indication: TYPE 2 DIABETES MELLITUS
     Route: 065

REACTIONS (6)
  - Pollakiuria [Unknown]
  - Vision blurred [Unknown]
  - Thirst [Unknown]
  - Nasopharyngitis [Unknown]
  - Off label use [Unknown]
  - Product use in unapproved indication [Unknown]
